FAERS Safety Report 25672908 (Version 1)
Quarter: 2025Q3

REPORT INFORMATION
  Report Type: Report from Study
  Country: US (occurrence: US)
  Receive Date: 20250812
  Receipt Date: 20250812
  Transmission Date: 20251021
  Serious: Yes (Other)
  Sender: ALEXION PHARMACEUTICALS
  Company Number: US-AstraZeneca-CH-00927654A

PATIENT
  Sex: Female

DRUGS (21)
  1. BENRALIZUMAB [Suspect]
     Active Substance: BENRALIZUMAB
     Indication: Asthma
     Dosage: 30 MILLIGRAM, Q8W
     Dates: start: 20240213
  2. BENRALIZUMAB [Suspect]
     Active Substance: BENRALIZUMAB
  3. ACETAMINOPHEN [Concomitant]
     Active Substance: ACETAMINOPHEN
     Route: 065
  4. ALBUTEROL [Concomitant]
     Active Substance: ALBUTEROL
     Route: 065
  5. AMLODIPINE [Concomitant]
     Active Substance: AMLODIPINE BESYLATE
     Route: 065
  6. BENZONATATE [Concomitant]
     Active Substance: BENZONATATE
     Route: 065
  7. BUPROPION [Concomitant]
     Active Substance: BUPROPION
     Route: 065
  8. CEPHALEXIN [Concomitant]
     Active Substance: CEPHALEXIN
     Route: 065
  9. DULERA [Concomitant]
     Active Substance: FORMOTEROL FUMARATE DIHYDRATE\MOMETASONE FUROATE
     Route: 065
  10. ESTRADIOL [Concomitant]
     Active Substance: ESTRADIOL
     Route: 065
  11. FLUTICASONE [Concomitant]
     Active Substance: FLUTICASONE
     Route: 065
  12. LOSARTAN [Concomitant]
     Active Substance: LOSARTAN
     Route: 065
  13. METFORMIN [Concomitant]
     Active Substance: METFORMIN HYDROCHLORIDE
     Route: 065
  14. METOPROLOL [Concomitant]
     Active Substance: METOPROLOL
     Route: 065
  15. MONTELUKAST [Concomitant]
     Active Substance: MONTELUKAST
     Route: 065
  16. OZEMPIC [Concomitant]
     Active Substance: SEMAGLUTIDE
     Route: 065
  17. PANTOPRAZOLE [Concomitant]
     Active Substance: PANTOPRAZOLE
     Route: 065
  18. FUROSEMIDE [Concomitant]
     Active Substance: FUROSEMIDE
     Route: 065
  19. ONDANSETRON [Concomitant]
     Active Substance: ONDANSETRON
     Route: 065
  20. POTASSIUM CHLORIDE [Concomitant]
     Active Substance: POTASSIUM CHLORIDE
     Route: 065
  21. KLAYESTA [Concomitant]
     Active Substance: NYSTATIN
     Route: 065

REACTIONS (2)
  - Pyrexia [Unknown]
  - Fatigue [Unknown]
